FAERS Safety Report 18331155 (Version 1)
Quarter: 2020Q3

REPORT INFORMATION
  Report Type: Spontaneous
  Country: TW (occurrence: TW)
  Receive Date: 20200930
  Receipt Date: 20200930
  Transmission Date: 20201103
  Serious: Yes (Other)
  Sender: FDA-Public Use
  Company Number: NVSC2020TW260656

PATIENT
  Age: 38 Year
  Sex: Male

DRUGS (3)
  1. TOBRADEX [Suspect]
     Active Substance: DEXAMETHASONE\TOBRAMYCIN
     Indication: EYE INFLAMMATION
     Dosage: UNK, QID
     Route: 047
  2. ATROPINE. [Concomitant]
     Active Substance: ATROPINE
     Indication: PUPIL DILATION PROCEDURE
     Dosage: UNK
     Route: 065
  3. PILOCARPINE. [Suspect]
     Active Substance: PILOCARPINE
     Indication: PUPILLARY DEFORMITY
     Dosage: UNK
     Route: 065

REACTIONS (2)
  - Product use in unapproved indication [Unknown]
  - Iridodialysis [Unknown]
